FAERS Safety Report 8087204-4 (Version None)
Quarter: 2012Q1

REPORT INFORMATION
  Report Type: 
  Country: None (occurrence: None)
  Receive Date: 20120128
  Receipt Date: 20110427
  Transmission Date: 20120608
  Serious: No
  Sender: FDA-Public Use
  Company Number: US-ABBOTT-11P-163-0722050-00

PATIENT
  Age: 44 Year
  Sex: Female

DRUGS (5)
  1. SINGULAIR [Concomitant]
     Indication: HYPERSENSITIVITY
     Dosage: DAILY
     Route: 048
  2. WELLBUTRIN [Concomitant]
     Indication: STRESS
     Route: 048
  3. HUMIRA [Suspect]
     Indication: COLITIS
     Dates: start: 20100101
  4. ALLEGRA-D 12 HOUR [Concomitant]
     Indication: HYPERSENSITIVITY
     Dosage: DAILY
     Route: 048
  5. HUMIRA [Suspect]
     Indication: MOUTH ULCERATION

REACTIONS (3)
  - DEVICE MALFUNCTION [None]
  - INCORRECT DOSE ADMINISTERED [None]
  - MOUTH ULCERATION [None]
